FAERS Safety Report 5762917-5 (Version None)
Quarter: 2008Q2

REPORT INFORMATION
  Report Type: 
  Country: None (occurrence: None)
  Receive Date: 20080609
  Receipt Date: 20080528
  Transmission Date: 20081010
  Serious: Yes (Other)
  Sender: FDA-Public Use
  Company Number: US-PFIZER INC-2008046164

PATIENT
  Age: 26 Year
  Sex: Male

DRUGS (4)
  1. XANAX [Suspect]
     Indication: ANXIETY
     Route: 048
  2. XANAX [Suspect]
     Indication: DEPENDENCE
  3. GABAPENTIN [Suspect]
     Dates: start: 20080421, end: 20080422
  4. SEROQUEL [Concomitant]
     Indication: BIPOLAR DISORDER
     Route: 048

REACTIONS (6)
  - DRUG DEPENDENCE [None]
  - FALL [None]
  - HYPERSENSITIVITY [None]
  - MEMORY IMPAIRMENT [None]
  - SWELLING FACE [None]
  - TREMOR [None]
